FAERS Safety Report 9274616 (Version 1)
Quarter: 2013Q2

REPORT INFORMATION
  Report Type: Spontaneous
  Country: US (occurrence: US)
  Receive Date: 20130507
  Receipt Date: 20130507
  Transmission Date: 20140414
  Serious: No
  Sender: FDA-Public Use
  Company Number: US-B.I. PHARMACEUTICALS,INC./RIDGEFIELD-2013-BI-12249BP

PATIENT
  Age: 76 Year
  Sex: Female

DRUGS (2)
  1. DULCOLAX TABLETS [Suspect]
     Indication: CONSTIPATION
     Dosage: 5 MG
     Route: 048
     Dates: start: 201302
  2. ZANTAC (RANITIDINE HYDROCHLORIDE) [Suspect]
     Indication: GASTRIC ULCER
     Route: 048

REACTIONS (2)
  - Gastrointestinal motility disorder [Not Recovered/Not Resolved]
  - Abdominal pain upper [Not Recovered/Not Resolved]
